FAERS Safety Report 9228831 (Version 1)
Quarter: 2013Q2

REPORT INFORMATION
  Report Type: Report from Study
  Country: US (occurrence: US)
  Receive Date: 20130412
  Receipt Date: 20130412
  Transmission Date: 20140414
  Serious: No
  Sender: FDA-Public Use
  Company Number: US-VERTEX PHARMACEUTICALS INC.-2013-004711

PATIENT
  Sex: Female
  Weight: 98 kg

DRUGS (8)
  1. VX-950 (TELAPREVIR) [Suspect]
     Indication: HEPATITIS C
     Dosage: 750 MG, TID
     Route: 048
     Dates: start: 20121101
  2. RIBASPHERE [Suspect]
     Indication: HEPATITIS C
     Dosage: 200 MG, UNK
     Dates: start: 20121101
  3. RIBASPHERE [Suspect]
     Dosage: UNK
  4. PEGASYS [Suspect]
     Indication: HEPATITIS C
     Dosage: 180MCG/M
  5. ZYRTEC [Concomitant]
     Dosage: 10 MG, UNK
  6. OMEPRAZOLE [Concomitant]
     Dosage: 20 MG, UNK
  7. ALBUTEROL                          /00139501/ [Concomitant]
     Dosage: 0.63MG/3
  8. PROAIR                             /00139502/ [Concomitant]

REACTIONS (7)
  - Nasal congestion [Unknown]
  - Dry mouth [Unknown]
  - Flatulence [Unknown]
  - Fatigue [Unknown]
  - Rash [Unknown]
  - Anaemia [Unknown]
  - Nausea [Unknown]
